FAERS Safety Report 18171476 (Version 1)
Quarter: 2020Q3

REPORT INFORMATION
  Report Type: Spontaneous
  Country: US (occurrence: US)
  Receive Date: 20200819
  Receipt Date: 20200819
  Transmission Date: 20201103
  Serious: No
  Sender: FDA-Public Use
  Company Number: US-DSJP-DSU-2020-123404

PATIENT
  Age: 72 Year
  Sex: Female

DRUGS (2)
  1. ENHERTU [Suspect]
     Active Substance: FAM-TRASTUZUMAB DERUXTECAN-NXKI
     Indication: HER2 POSITIVE BREAST CANCER
     Dosage: 374 MG, ONCE EVERY 3 WK
     Route: 042
     Dates: start: 2020, end: 2020
  2. ENHERTU [Suspect]
     Active Substance: FAM-TRASTUZUMAB DERUXTECAN-NXKI
     Dosage: 200 MG, ONCE EVERY 3 WK
     Route: 042
     Dates: start: 2020, end: 202007

REACTIONS (2)
  - Parkinsonism [Unknown]
  - Nausea [Unknown]

NARRATIVE: CASE EVENT DATE: 2020
